FAERS Safety Report 8241802-3 (Version None)
Quarter: 2012Q1

REPORT INFORMATION
  Report Type: 
  Country: None (occurrence: None)
  Receive Date: 20120328
  Receipt Date: 20110620
  Transmission Date: 20120608
  Serious: Yes (Hospitalization)
  Sender: FDA-Public Use
  Company Number: TR-WATSON-2011-09574

PATIENT
  Age: 60 Year
  Sex: Female

DRUGS (1)
  1. CEFUROXIME [Suspect]
     Indication: UPPER RESPIRATORY TRACT INFECTION
     Dosage: 500 MG, BID
     Route: 048

REACTIONS (1)
  - HEPATIC FAILURE [None]
